FAERS Safety Report 11303107 (Version 2)
Quarter: 2015Q3

REPORT INFORMATION
  Report Type: Spontaneous
  Country: AR (occurrence: AR)
  Receive Date: 20150723
  Receipt Date: 20150730
  Transmission Date: 20151125
  Serious: Yes (Other)
  Sender: FDA-Public Use
  Company Number: AR-ASTRAZENECA-2015SE70610

PATIENT
  Age: 72 Year
  Sex: Female

DRUGS (3)
  1. BRILINTA [Suspect]
     Active Substance: TICAGRELOR
     Route: 048
     Dates: start: 20150423, end: 20150424
  2. ASA [Concomitant]
     Active Substance: ASPIRIN
  3. HEPARIN [Concomitant]
     Active Substance: HEPARIN SODIUM

REACTIONS (2)
  - Myocardial infarction [Unknown]
  - Atrioventricular block complete [Unknown]

NARRATIVE: CASE EVENT DATE: 20150701
